FAERS Safety Report 8282246-8 (Version None)
Quarter: 2012Q2

REPORT INFORMATION
  Report Type: 
  Country: None (occurrence: None)
  Receive Date: 20120413
  Receipt Date: 20120405
  Transmission Date: 20120825
  Serious: Yes (Hospitalization, Other)
  Sender: FDA-Public Use
  Company Number: US-BAYER-2011-076311

PATIENT
  Age: 27 Year
  Sex: Female
  Weight: 76.19 kg

DRUGS (5)
  1. METHOTREXATE [Concomitant]
     Indication: RHEUMATOID ARTHRITIS
  2. YAZ [Suspect]
     Indication: ACNE
     Dosage: UNK
     Dates: start: 20030401, end: 20030601
  3. YAZ [Suspect]
     Dosage: UNK
     Dates: start: 20090201, end: 20090901
  4. KLONOPIN [Concomitant]
     Indication: ANXIETY
  5. KLONOPIN [Concomitant]
     Indication: STRESS
     Dosage: UNK
     Dates: start: 20090601

REACTIONS (10)
  - PAIN [None]
  - PULMONARY EMBOLISM [None]
  - MYOCARDIAL INFARCTION [None]
  - DEEP VEIN THROMBOSIS [None]
  - CEREBROVASCULAR ACCIDENT [None]
  - STRESS [None]
  - ANXIETY [None]
  - GALLBLADDER DISORDER [None]
  - INJURY [None]
  - FEAR [None]
